FAERS Safety Report 7476776-6 (Version None)
Quarter: 2011Q2

REPORT INFORMATION
  Report Type: 
  Country: None (occurrence: None)
  Receive Date: 20110512
  Receipt Date: 20110506
  Transmission Date: 20111010
  Serious: Yes (Hospitalization)
  Sender: FDA-Public Use
  Company Number: FR-PFIZER INC-2011097532

PATIENT
  Age: 83 Year
  Sex: Female

DRUGS (7)
  1. EXELON [Concomitant]
  2. ATORVASTATIN CALCIUM [Concomitant]
  3. MIRTAZAPINE [Concomitant]
  4. GLUCOR [Concomitant]
  5. EFFEXOR XR [Suspect]
     Dosage: UNK
     Route: 048
     Dates: start: 20110207, end: 20110301
  6. RAMIPRIL [Concomitant]
  7. ASPIRIN [Concomitant]

REACTIONS (4)
  - FALL [None]
  - DISORIENTATION [None]
  - PSYCHOMOTOR HYPERACTIVITY [None]
  - COGNITIVE DISORDER [None]
